FAERS Safety Report 12855290 (Version 2)
Quarter: 2016Q4

REPORT INFORMATION
  Report Type: Report from Study
  Country: BR (occurrence: BR)
  Receive Date: 20161017
  Receipt Date: 20161213
  Transmission Date: 20170207
  Serious: Yes (Death, Hospitalization)
  Sender: FDA-Public Use
  Company Number: PHHY2016BR142682

PATIENT
  Sex: Male
  Weight: 78 kg

DRUGS (1)
  1. ACLASTA [Suspect]
     Active Substance: ZOLEDRONIC ACID
     Indication: PRODUCT USED FOR UNKNOWN INDICATION
     Dosage: UNK
     Route: 065
     Dates: start: 201512

REACTIONS (4)
  - Renal disorder [Unknown]
  - Liver disorder [Unknown]
  - Infection [Fatal]
  - Parkinson^s disease [Unknown]
